FAERS Safety Report 10526505 (Version 2)
Quarter: 2014Q4

REPORT INFORMATION
  Report Type: Spontaneous
  Country: US (occurrence: US)
  Receive Date: 20141020
  Receipt Date: 20141027
  Transmission Date: 20150528
  Serious: Yes (Hospitalization)
  Sender: FDA-Public Use
  Company Number: US-UNITED THERAPEUTICS-UNT-2014-009217

PATIENT
  Age: 58 Year
  Sex: Female
  Weight: 55.33 kg

DRUGS (1)
  1. REMODULIN [Suspect]
     Active Substance: TREPROSTINIL
     Indication: COR PULMONALE CHRONIC
     Dosage: 0.040 ?G/KG, CONTINUING
     Route: 041
     Dates: start: 20131127

REACTIONS (1)
  - Biopsy lung [Not Recovered/Not Resolved]

NARRATIVE: CASE EVENT DATE: 20141002
